FAERS Safety Report 25858750 (Version 3)
Quarter: 2025Q4

REPORT INFORMATION
  Report Type: Report from Study
  Country: US (occurrence: US)
  Receive Date: 20250929
  Receipt Date: 20251029
  Transmission Date: 20260118
  Serious: Yes (Other)
  Sender: ROCHE
  Company Number: US-ROCHE-10000396498

PATIENT
  Age: 38 Year
  Sex: Male

DRUGS (1)
  1. OCREVUS [Suspect]
     Active Substance: OCRELIZUMAB
     Indication: Relapsing-remitting multiple sclerosis
     Dosage: THEN 600MG EVERY 6 MONTHS,?LAST INFUSION ON 04/AUG/2025
     Route: 042
     Dates: start: 20250115

REACTIONS (10)
  - Pancreatitis [Recovered/Resolved]
  - Rash [Recovered/Resolved]
  - Abdominal pain [Unknown]
  - Headache [Unknown]
  - Muscle spasms [Unknown]
  - Back pain [Unknown]
  - Lumbar radiculopathy [Unknown]
  - Neuralgia [Unknown]
  - Neuritis [Unknown]
  - Multiple sclerosis [Unknown]
